FAERS Safety Report 12729375 (Version 1)
Quarter: 2016Q3

REPORT INFORMATION
  Report Type: Spontaneous
  Country: JP (occurrence: JP)
  Receive Date: 20160909
  Receipt Date: 20160909
  Transmission Date: 20161109
  Serious: Yes (Disabling)
  Sender: FDA-Public Use
  Company Number: JP-DEPOMED, INC.-JP-2016DEP012010

PATIENT
  Age: 40 Year
  Sex: Male

DRUGS (8)
  1. TAPENTADOL HYDROCHLORIDE [Suspect]
     Active Substance: TAPENTADOL HYDROCHLORIDE
     Indication: PAIN
     Dosage: 25 MG, BID
     Route: 048
     Dates: start: 20160805, end: 20160807
  2. CELECOX [Concomitant]
     Active Substance: CELECOXIB
     Indication: PAIN
     Dosage: UNK
  3. TAPENTADOL HYDROCHLORIDE [Suspect]
     Active Substance: TAPENTADOL HYDROCHLORIDE
     Dosage: 50 MG, BID
     Route: 048
     Dates: start: 20160808, end: 20160829
  4. METHYCOBAL [Concomitant]
     Active Substance: METHYLCOBALAMIN
     Indication: PAIN
     Dosage: UNK
  5. ASPIRIN                            /00002701/ [Concomitant]
     Active Substance: ASPIRIN
     Indication: PAIN
     Dosage: UNK
  6. LYRICA [Concomitant]
     Active Substance: PREGABALIN
     Indication: PAIN
     Dosage: UNK
  7. OXYCODONE [Concomitant]
     Active Substance: OXYCODONE
     Indication: PAIN
     Dosage: UNK
     Dates: start: 20160101, end: 20160804
  8. CRAVIT [Concomitant]
     Active Substance: LEVOFLOXACIN
     Indication: PAIN
     Dosage: UNK

REACTIONS (2)
  - Dysphagia [Recovered/Resolved]
  - Foreign body [Recovered/Resolved]

NARRATIVE: CASE EVENT DATE: 20160829
